FAERS Safety Report 21722305 (Version 1)
Quarter: 2022Q4

REPORT INFORMATION
  Report Type: Spontaneous
  Country: US (occurrence: None)
  Receive Date: 20221212
  Receipt Date: 20221212
  Transmission Date: 20230112
  Serious: Yes (Other)
  Sender: FDA-Public Use
  Company Number: None

PATIENT
  Age: 91 Year
  Sex: Female

DRUGS (14)
  1. AMBRISENTAN [Suspect]
     Active Substance: AMBRISENTAN
     Indication: Pulmonary hypertension
     Dosage: FREQUENCY : DAILY;?
     Dates: start: 20221010, end: 20221115
  2. AMBRISENTAN [Concomitant]
  3. ADEMPAS [Concomitant]
     Active Substance: RIOCIGUAT
  4. TORSEMIDE [Concomitant]
  5. APIXABAN [Concomitant]
  6. AZATHIOPRINE [Concomitant]
  7. MESALAMINE [Concomitant]
  8. ALBUTEROL INHL HFA [Concomitant]
  9. HYDROXYUREA [Concomitant]
  10. LOPERAMIDE [Concomitant]
  11. ACETAMINOPHEN [Concomitant]
  12. SPIRIVA RESPIMAT [Concomitant]
  13. LIDOCAINE TOP PATCH [Concomitant]
  14. BENGAY ULTRA STRENGTH TOP CREAM [Concomitant]

REACTIONS (2)
  - Fluid retention [None]
  - Drug intolerance [None]

NARRATIVE: CASE EVENT DATE: 20221115
